FAERS Safety Report 4504039-7 (Version None)
Quarter: 2004Q4

REPORT INFORMATION
  Report Type: 
  Country: None (occurrence: None)
  Receive Date: 20041115
  Receipt Date: 20041102
  Transmission Date: 20050328
  Serious: Yes (Other)
  Sender: FDA-Public Use
  Company Number: 2004070094

PATIENT
  Sex: Female
  Weight: 55.7924 kg

DRUGS (3)
  1. VISINE TEARS (GLYCERIN, HYDROXYPROPYLMETHYLCELLULOSE, POLYETHYLENE GLY [Suspect]
     Indication: DRY EYE
     Dosage: 1-2 DROPS 2-3X DAILY, OPHTHALMIC
     Route: 047
  2. PREDNISONE [Concomitant]
  3. VALSARTAN (VALSARTAN) [Concomitant]

REACTIONS (3)
  - CATARACT OPERATION [None]
  - DRY SKIN [None]
  - EYE PRURITUS [None]
